FAERS Safety Report 10723480 (Version 2)
Quarter: 2015Q1

REPORT INFORMATION
  Report Type: Spontaneous
  Country: FR (occurrence: FR)
  Receive Date: 20150120
  Receipt Date: 20150129
  Transmission Date: 20150721
  Serious: Yes (Other)
  Sender: FDA-Public Use
  Company Number: FR-SA-2015SA006455

PATIENT
  Age: 51 Year
  Sex: Male

DRUGS (9)
  1. CLOFARABINE [Suspect]
     Active Substance: CLOFARABINE
     Indication: CHEMOTHERAPY
     Route: 041
  2. CYTARABINE. [Suspect]
     Active Substance: CYTARABINE
     Indication: CHEMOTHERAPY
     Route: 041
  3. CYCLOSPORINE. [Suspect]
     Active Substance: CYCLOSPORINE
     Indication: IMMUNOSUPPRESSION
     Route: 065
  4. MYCOPHENOLATE MOFETIL. [Concomitant]
     Active Substance: MYCOPHENOLATE MOFETIL
     Indication: PROPHYLAXIS
  5. CYTARABINE. [Suspect]
     Active Substance: CYTARABINE
     Indication: CHEMOTHERAPY
     Route: 041
  6. DAUNORUBICINE [Concomitant]
     Active Substance: DAUNORUBICIN
     Indication: CHEMOTHERAPY
  7. CYCLOPHOSPHAMIDE. [Concomitant]
     Active Substance: CYCLOPHOSPHAMIDE
  8. FLUDARABINE PHOSPHATE. [Suspect]
     Active Substance: FLUDARABINE PHOSPHATE
     Indication: BONE MARROW CONDITIONING REGIMEN
     Route: 065
  9. CLOFARABINE [Suspect]
     Active Substance: CLOFARABINE
     Indication: CHEMOTHERAPY
     Route: 041

REACTIONS (9)
  - Confusional state [Unknown]
  - Blindness [Unknown]
  - Toxic encephalopathy [Unknown]
  - Pyramidal tract syndrome [Unknown]
  - Vision blurred [Unknown]
  - Lethargy [Unknown]
  - Frontotemporal dementia [Unknown]
  - Visual acuity reduced [Unknown]
  - Coma [Unknown]
